FAERS Safety Report 6488590-9 (Version None)
Quarter: 2009Q4

REPORT INFORMATION
  Report Type: 
  Country: None (occurrence: None)
  Receive Date: 20091210
  Receipt Date: 20090908
  Transmission Date: 20100525
  Serious: No
  Sender: FDA-Public Use
  Company Number: US-AMGEN-KDL363587

PATIENT
  Sex: Male

DRUGS (1)
  1. ENBREL [Suspect]
     Indication: PSORIATIC ARTHROPATHY
     Route: 058
     Dates: start: 20041001

REACTIONS (5)
  - ARTHRALGIA [None]
  - ARTHROPOD BITE [None]
  - ERYTHEMA [None]
  - LOCAL SWELLING [None]
  - LOCALISED INFECTION [None]
